FAERS Safety Report 5196364-4 (Version None)
Quarter: 2006Q4

REPORT INFORMATION
  Report Type: 
  Country: None (occurrence: None)
  Receive Date: 20061222
  Receipt Date: 20061206
  Transmission Date: 20070319
  Serious: Yes (Other)
  Sender: FDA-Public Use
  Company Number: 2006BI017903

PATIENT
  Sex: Female

DRUGS (1)
  1. AVONEX [Suspect]
     Indication: MULTIPLE SCLEROSIS
     Dosage: 30 UG QW IM
     Route: 030
     Dates: end: 20061101

REACTIONS (6)
  - ECTOPIC PREGNANCY [None]
  - FOETAL MALPOSITION [None]
  - FORCEPS DELIVERY [None]
  - TRANSMISSION OF DRUG VIA SEMEN [None]
  - UMBILICAL CORD ABNORMALITY [None]
  - UMBILICAL CORD AROUND NECK [None]
